FAERS Safety Report 18073276 (Version 1)
Quarter: 2020Q3

REPORT INFORMATION
  Report Type: Spontaneous
  Country: US (occurrence: US)
  Receive Date: 20200725
  Receipt Date: 20200725
  Transmission Date: 20201103
  Serious: Yes (Life-Threatening, Hospitalization, Disabling)
  Sender: FDA-Public Use
  Company Number: None

PATIENT
  Age: 44 Year
  Sex: Male
  Weight: 74.84 kg

DRUGS (1)
  1. CIALIS [Suspect]
     Active Substance: TADALAFIL

REACTIONS (2)
  - Cardiac failure congestive [None]
  - Cardiomegaly [None]

NARRATIVE: CASE EVENT DATE: 20190412
